FAERS Safety Report 11787154 (Version 2)
Quarter: 2016Q4

REPORT INFORMATION
  Report Type: Spontaneous
  Country: JP (occurrence: JP)
  Receive Date: 20151130
  Receipt Date: 20161031
  Transmission Date: 20170206
  Serious: Yes (Hospitalization, Other)
  Sender: FDA-Public Use
  Company Number: JP-GLAXOSMITHKLINE-JP2015JPN139031

PATIENT
  Age: 4 Decade
  Sex: Female

DRUGS (2)
  1. LAMICTAL [Suspect]
     Active Substance: LAMOTRIGINE
     Dosage: 250 MG, QD
     Route: 048
     Dates: start: 2014
  2. LAMICTAL [Suspect]
     Active Substance: LAMOTRIGINE
     Indication: EPILEPSY
     Dosage: 250 MG, QD
     Route: 048
     Dates: start: 2013

REACTIONS (5)
  - IgA nephropathy [Recovering/Resolving]
  - Blood creatinine increased [Unknown]
  - Protein urine present [Unknown]
  - Blood urine present [Unknown]
  - Renal disorder [Recovering/Resolving]
